FAERS Safety Report 9600512 (Version 1)
Quarter: 2013Q4

REPORT INFORMATION
  Report Type: Spontaneous
  Country: US (occurrence: US)
  Receive Date: 20131004
  Receipt Date: 20131004
  Transmission Date: 20140711
  Serious: No
  Sender: FDA-Public Use
  Company Number: US-AMGEN-USASP2013035677

PATIENT
  Age: 33 Year
  Sex: Female
  Weight: 81.63 kg

DRUGS (7)
  1. ENBREL [Suspect]
     Indication: PRODUCT USED FOR UNKNOWN INDICATION
     Dosage: 50 MG, ONCE A WEEK
     Route: 058
     Dates: end: 20130508
  2. PREDNISONE [Concomitant]
     Dosage: 1 MG, UNK
  3. ARAVA [Concomitant]
     Dosage: 20 MG, UNK
  4. CELEXA                             /00582602/ [Concomitant]
     Dosage: 10 MG, UNK
  5. METHOTREXATE [Concomitant]
     Dosage: 50MG/2ML, UNK
  6. OXYCODONE [Concomitant]
     Dosage: 10 MG, UNK
  7. FOLIC ACID [Concomitant]
     Dosage: 20 MG, UNK

REACTIONS (2)
  - Condition aggravated [Unknown]
  - Joint fluid drainage [Unknown]
